FAERS Safety Report 8561078-7 (Version None)
Quarter: 2012Q3

REPORT INFORMATION
  Report Type: 
  Country: None (occurrence: None)
  Receive Date: 20120802
  Receipt Date: 20120305
  Transmission Date: 20120928
  Serious: Yes (Hospitalization, Other)
  Sender: FDA-Public Use
  Company Number: US-BRISTOL-MYERS SQUIBB COMPANY-16432510

PATIENT
  Age: 52 Year
  Sex: Male

DRUGS (8)
  1. TENOFOVIR DISOPROXIL FUMARATE [Suspect]
     Indication: HIV INFECTION
     Route: 065
  2. ASPIRIN [Concomitant]
  3. LISINOPRIL [Concomitant]
  4. RITONAVIR [Suspect]
     Indication: HIV INFECTION
     Route: 065
  5. EPZICOM [Suspect]
     Indication: HIV INFECTION
     Dosage: 1DF=1TABLET
     Route: 048
  6. COREG [Concomitant]
  7. ATAZANAVIR [Suspect]
     Indication: HIV INFECTION
     Route: 065
  8. METFORMIN HYDROCHLORIDE [Concomitant]

REACTIONS (1)
  - PANCREATITIS [None]
